FAERS Safety Report 23961406 (Version 1)
Quarter: 2024Q2

REPORT INFORMATION
  Report Type: Report from Study
  Country: US (occurrence: US)
  Receive Date: 20240611
  Receipt Date: 20240611
  Transmission Date: 20240716
  Serious: Yes (Other)
  Sender: FDA-Public Use
  Company Number: US-MALLINCKRODT-MNK202403105

PATIENT
  Sex: Female

DRUGS (1)
  1. CORTICOTROPIN [Suspect]
     Active Substance: CORTICOTROPIN
     Indication: Systemic lupus erythematosus
     Dosage: UNKNOWN

REACTIONS (13)
  - Perforated ulcer [Unknown]
  - Diplegia [Not Recovered/Not Resolved]
  - Diabetic neuropathy [Unknown]
  - Coma [Recovered/Resolved with Sequelae]
  - Surgery [Unknown]
  - Cystitis [Unknown]
  - Sepsis [Unknown]
  - Crying [Unknown]
  - Drooling [Unknown]
  - Pain in extremity [Unknown]
  - Migraine [Not Recovered/Not Resolved]
  - Influenza [Unknown]
  - Peripheral swelling [Recovering/Resolving]
